FAERS Safety Report 19561355 (Version 1)
Quarter: 2021Q3

REPORT INFORMATION
  Report Type: Spontaneous
  Country: US (occurrence: US)
  Receive Date: 20210716
  Receipt Date: 20210716
  Transmission Date: 20211014
  Serious: Yes (Hospitalization)
  Sender: FDA-Public Use
  Company Number: None

PATIENT
  Age: 75 Year
  Sex: Male
  Weight: 91 kg

DRUGS (1)
  1. NIRAPARIB TOSYLATE MONOHYDRATE [Suspect]
     Active Substance: NIRAPARIB TOSYLATE MONOHYDRATE
     Dates: end: 20210115

REACTIONS (7)
  - Colon injury [None]
  - Proctitis [None]
  - Gastrointestinal tract adenoma [None]
  - Anaemia [None]
  - Rectal haemorrhage [None]
  - Rectal ulcer [None]
  - Diarrhoea haemorrhagic [None]

NARRATIVE: CASE EVENT DATE: 20210429
